FAERS Safety Report 4456589-X (Version None)
Quarter: 2004Q3

REPORT INFORMATION
  Report Type: 
  Country: None (occurrence: None)
  Receive Date: 20040921
  Receipt Date: 20040903
  Transmission Date: 20050211
  Serious: Yes (Hospitalization)
  Sender: FDA-Public Use
  Company Number: ATO-04-0799 (0)

PATIENT
  Sex: Female

DRUGS (5)
  1. TRISENOX [Suspect]
     Dosage: 10 MILLIGRAM/MILLITER
  2. MACRODANTIN [Concomitant]
  3. ALLOPURINOL [Concomitant]
  4. COREG [Concomitant]
  5. LASIX [Concomitant]

REACTIONS (3)
  - CARDIOMEGALY [None]
  - CARDIOMYOPATHY [None]
  - PLEURAL EFFUSION [None]
